FAERS Safety Report 8050464-X (Version None)
Quarter: 2012Q1

REPORT INFORMATION
  Report Type: 
  Country: None (occurrence: None)
  Receive Date: 20120103
  Receipt Date: 20111221
  Transmission Date: 20120608
  Serious: Yes (Hospitalization, Other)
  Sender: FDA-Public Use
  Company Number: 2011029557

PATIENT
  Age: 42 Year
  Sex: Female
  Weight: 69.8539 kg

DRUGS (14)
  1. NEXIUM [Concomitant]
  2. DYAZIDE [Concomitant]
  3. THIS INDIVIDUAL CASE DOES NOT AFFECT THE BENEFIT-RISK ASSESSMENT, HENC [Suspect]
  4. HIZENTRA [Suspect]
     Indication: HYPOGAMMAGLOBULINAEMIA
     Dosage: SEE IMAGE
     Route: 058
     Dates: start: 20110316, end: 20111110
  5. HIZENTRA [Suspect]
     Indication: HYPOGAMMAGLOBULINAEMIA
     Dosage: SEE IMAGE
     Route: 058
     Dates: start: 20110316
  6. XANAX [Concomitant]
  7. PLAQUENIL [Concomitant]
  8. HYDROCODONE BT IBUPROFEM (HYDROCODONE W/IBUPROFEN) [Concomitant]
  9. FLEXERIL [Concomitant]
  10. TOPAMAX [Concomitant]
  11. HIZENTRA [Suspect]
  12. IBUPROFEN (IBUPROFEN) [Concomitant]
  13. DICYCLOMINE (DICYCLOMINE) [Concomitant]
  14. WELLBUTRIN XL [Concomitant]

REACTIONS (10)
  - PRURITUS [None]
  - INFUSION SITE ERYTHEMA [None]
  - NEPHROLITHIASIS [None]
  - HEADACHE [None]
  - NAUSEA [None]
  - PYREXIA [None]
  - NECK PAIN [None]
  - VOMITING [None]
  - EYE INFECTION STAPHYLOCOCCAL [None]
  - BRONCHITIS [None]
